FAERS Safety Report 7039117-4 (Version None)
Quarter: 2010Q4

REPORT INFORMATION
  Report Type: 
  Country: None (occurrence: None)
  Receive Date: 20101012
  Receipt Date: 20101005
  Transmission Date: 20110411
  Serious: Yes (Hospitalization)
  Sender: FDA-Public Use
  Company Number: JP-BAYER-200913815BYL

PATIENT
  Age: 74 Year
  Sex: Male
  Weight: 63 kg

DRUGS (23)
  1. NEXAVAR [Suspect]
     Indication: RENAL CELL CARCINOMA
     Dosage: TOTAL DAILY DOSE: 400 MG  UNIT DOSE: 200 MG
     Route: 048
     Dates: start: 20090721, end: 20090831
  2. NEXAVAR [Suspect]
     Dosage: TOTAL DAILY DOSE: 400 MG  UNIT DOSE: 200 MG
     Route: 048
     Dates: start: 20090608, end: 20090621
  3. NEXAVAR [Suspect]
     Dosage: TOTAL DAILY DOSE: 400 MG  UNIT DOSE: 200 MG
     Route: 048
     Dates: start: 20090511, end: 20090524
  4. NEXAVAR [Suspect]
     Dosage: UNIT DOSE: 200 MG
     Route: 048
     Dates: start: 20090325, end: 20090406
  5. NEXAVAR [Suspect]
     Dosage: TOTAL DAILY DOSE: 800 MG  UNIT DOSE: 200 MG
     Route: 048
     Dates: start: 20081208, end: 20081219
  6. NEXAVAR [Suspect]
     Dosage: UNIT DOSE: 200 MG
     Route: 048
     Dates: start: 20090109, end: 20090206
  7. NEXAVAR [Suspect]
     Dosage: TOTAL DAILY DOSE: 400 MG  UNIT DOSE: 200 MG
     Route: 048
     Dates: start: 20090228, end: 20090324
  8. NEXAVAR [Suspect]
     Dosage: TOTAL DAILY DOSE: 400 MG  UNIT DOSE: 200 MG
     Route: 048
     Dates: start: 20090407, end: 20090420
  9. NEXAVAR [Suspect]
     Dosage: TOTAL DAILY DOSE: 400 MG  UNIT DOSE: 200 MG
     Route: 048
     Dates: start: 20091202
  10. NEXAVAR [Suspect]
     Dosage: TOTAL DAILY DOSE: 400 MG  UNIT DOSE: 200 MG
     Route: 048
     Dates: start: 20090915, end: 20091007
  11. NEXAVAR [Suspect]
     Dosage: TOTAL DAILY DOSE: 400 MG  UNIT DOSE: 200 MG
     Route: 048
     Dates: start: 20091026, end: 20091112
  12. FERROMIA [Concomitant]
     Route: 048
     Dates: start: 20081114, end: 20081219
  13. GLYCYRON [Concomitant]
     Route: 048
     Dates: start: 20081121, end: 20091012
  14. PROHEPARUM [Concomitant]
     Route: 048
     Dates: start: 20081121, end: 20091012
  15. MARZULENE S [Concomitant]
     Route: 048
     Dates: start: 20081121, end: 20091012
  16. JUZENTAIHOTO [Concomitant]
     Route: 048
     Dates: start: 20081204, end: 20090831
  17. HIRUDOID [Concomitant]
     Indication: PROPHYLAXIS
     Route: 061
     Dates: start: 20081205, end: 20090301
  18. KENALOG [Concomitant]
     Route: 061
     Dates: start: 20090206, end: 20090210
  19. ALMETA [Concomitant]
     Route: 061
     Dates: start: 20090818, end: 20090825
  20. ALESION [Concomitant]
     Route: 048
     Dates: start: 20090818, end: 20090831
  21. EBASTINE [Concomitant]
     Route: 048
     Dates: start: 20090901, end: 20090914
  22. DERMOVATE [Concomitant]
     Route: 061
     Dates: start: 20090901, end: 20090908
  23. PHYSIO 35 [Concomitant]
     Route: 042
     Dates: start: 20091016, end: 20091022

REACTIONS (13)
  - BLOOD AMYLASE INCREASED [None]
  - BLOOD PRESSURE INCREASED [None]
  - ENTEROCOLITIS [None]
  - ERYTHEMA [None]
  - GRANULOCYTE COUNT DECREASED [None]
  - HYPERTENSION [None]
  - PALMAR-PLANTAR ERYTHRODYSAESTHESIA SYNDROME [None]
  - PANCREATIC ENZYMES INCREASED [None]
  - PLATELET COUNT DECREASED [None]
  - STOMATITIS [None]
  - SUBILEUS [None]
  - THROMBOCYTOPENIA [None]
  - TOXIC SKIN ERUPTION [None]
